FAERS Safety Report 24920252 (Version 1)
Quarter: 2025Q1

REPORT INFORMATION
  Report Type: Report from Study
  Country: CA (occurrence: CA)
  Receive Date: 20250204
  Receipt Date: 20250204
  Transmission Date: 20250408
  Serious: No
  Sender: EXELIXIS
  Company Number: CA-IPSEN Group, Research and Development-2024-01648

PATIENT
  Sex: Male

DRUGS (31)
  1. CABOMETYX [Suspect]
     Active Substance: CABOZANTINIB S-MALATE
     Indication: Renal cell carcinoma
     Dosage: 60 MG, QD
     Dates: start: 20240101
  2. CABOMETYX [Suspect]
     Active Substance: CABOZANTINIB S-MALATE
     Dosage: 20 MG, QD
  3. FERRIC POLYSACCHARIDE COMPLEX [Concomitant]
     Active Substance: FERRIC POLYSACCHARIDE COMPLEX
  4. AMLODIPINE BESYLATE [Concomitant]
     Active Substance: AMLODIPINE BESYLATE
  5. FOLIC ACID [Concomitant]
     Active Substance: FOLIC ACID
  6. FOLIC ACID [Concomitant]
     Active Substance: FOLIC ACID
     Dosage: TAKEN ONCE A DAY
  7. ASPIRIN [Concomitant]
     Active Substance: ASPIRIN
  8. PANTOPRAZOLE MAGNESIUM [Concomitant]
     Active Substance: PANTOPRAZOLE MAGNESIUM
  9. REPLACIVE [Concomitant]
  10. REPLACIVE [Concomitant]
  11. IRBESARTAN [Concomitant]
     Active Substance: IRBESARTAN
  12. HYDRALAZINE HCL [Concomitant]
     Active Substance: HYDRALAZINE HYDROCHLORIDE
  13. METOPROLOL [Concomitant]
     Active Substance: METOPROLOL
  14. LEVOTHYROXINE [Concomitant]
     Active Substance: LEVOTHYROXINE
  15. ATORVASTATIN [Concomitant]
     Active Substance: ATORVASTATIN
  16. PENTASA [Concomitant]
     Active Substance: MESALAMINE
  17. PANCRELIPASE [Concomitant]
     Active Substance: PANCRELIPASE
  18. ODAN-POLYSACCHARIDE IRON COMPLEX [Concomitant]
  19. ASA ASPIRIN [Concomitant]
  20. METAVANTE PANTOPRAZOLE MAGNESIUM [Concomitant]
  21. METOPROLOL SODIUM [Concomitant]
  22. COTAZMY ECS 8 PANCRELIPSASE [Concomitant]
  23. SYNTHROID [Concomitant]
     Active Substance: LEVOTHYROXINE SODIUM
  24. SODIUM BICARBONATE [Concomitant]
     Active Substance: SODIUM BICARBONATE
  25. TEVA- ATORVASTATIN [Concomitant]
     Dosage: BEDTIME
  26. MAR-AMLODIPINE [Concomitant]
  27. SANDOZ-IRBESARTAN [Concomitant]
  28. HYDRALAZINE HYDROCHLORIDE [Concomitant]
     Active Substance: HYDRALAZINE HYDROCHLORIDE
  29. PANTOPRAZOLE [Concomitant]
     Active Substance: PANTOPRAZOLE
  30. METOPROLOL TARTRATE [Concomitant]
     Active Substance: METOPROLOL TARTRATE
  31. SKYRIZI [Concomitant]
     Active Substance: RISANKIZUMAB-RZAA

REACTIONS (6)
  - Eating disorder [Not Recovered/Not Resolved]
  - Vomiting [Not Recovered/Not Resolved]
  - Weight decreased [Unknown]
  - Asthenia [Unknown]
  - Nausea [Recovered/Resolved]
  - Pruritus [Recovered/Resolved]
